FAERS Safety Report 9666702 (Version 2)
Quarter: 2014Q1

REPORT INFORMATION
  Report Type: Spontaneous
  Country: US (occurrence: US)
  Receive Date: 20131104
  Receipt Date: 20140304
  Transmission Date: 20141002
  Serious: Yes (Hospitalization)
  Sender: FDA-Public Use
  Company Number: US-BIOGENIDEC-2013BI087214

PATIENT
  Age: 32 Year
  Sex: Female

DRUGS (4)
  1. TECFIDERA [Suspect]
     Indication: MULTIPLE SCLEROSIS
     Route: 048
     Dates: start: 20130701
  2. ZOLOFT [Concomitant]
  3. KLONOPIN [Concomitant]
  4. LYSINE HCL [Concomitant]

REACTIONS (2)
  - Diarrhoea [Unknown]
  - Nausea [Unknown]
